FAERS Safety Report 6674882-7 (Version None)
Quarter: 2010Q2

REPORT INFORMATION
  Report Type: 
  Country: None (occurrence: None)
  Receive Date: 20100409
  Receipt Date: 20100331
  Transmission Date: 20101027
  Serious: Yes (Hospitalization)
  Sender: FDA-Public Use
  Company Number: US-SANOFI-AVENTIS-2010SA019026

PATIENT
  Age: 87 Year
  Sex: Female

DRUGS (2)
  1. MULTAQ [Suspect]
     Route: 065
     Dates: start: 20100301, end: 20100319
  2. ALL OTHER THERAPEUTIC PRODUCTS [Concomitant]

REACTIONS (3)
  - ATRIAL FIBRILLATION [None]
  - HYPOTHYROIDISM [None]
  - LIVER FUNCTION TEST ABNORMAL [None]
